FAERS Safety Report 21855714 (Version 2)
Quarter: 2023Q1

REPORT INFORMATION
  Report Type: Spontaneous
  Country: US (occurrence: US)
  Receive Date: 20230112
  Receipt Date: 20230210
  Transmission Date: 20230418
  Serious: Yes (Life-Threatening, Hospitalization)
  Sender: FDA-Public Use
  Company Number: US-TEVA-2023-US-2843069

PATIENT
  Age: 73 Year
  Sex: Male

DRUGS (3)
  1. EPINEPHRINE [Suspect]
     Active Substance: EPINEPHRINE
     Indication: Cardiogenic shock
     Dosage: 0.035-0.18 MICROG/KG/MIN; SCHEDULED FOR 6 DAYS
     Route: 042
  2. NOREPINEPHRINE [Suspect]
     Active Substance: NOREPINEPHRINE
     Indication: Cardiogenic shock
     Dosage: 0.04-0.2 MG/KG/MIN; SCHEDULED FOR 6 DAYS
     Route: 042
  3. VASOPRESSIN [Suspect]
     Active Substance: VASOPRESSIN
     Indication: Cardiogenic shock
     Route: 042

REACTIONS (2)
  - Ischaemia [Recovering/Resolving]
  - Drug ineffective [Unknown]
